FAERS Safety Report 8911570 (Version 1)
Quarter: 2012Q4

REPORT INFORMATION
  Report Type: 
  Country: US (occurrence: US)
  Receive Date: 20121115
  Receipt Date: 20121115
  Transmission Date: 20130627
  Serious: No
  Sender: FDA-Public Use
  Company Number: US-PFIZER INC-2012283972

PATIENT
  Age: 36 Year
  Sex: Female
  Weight: 68.03 kg

DRUGS (1)
  1. EFFEXOR [Suspect]
     Indication: FIBROMYALGIA
     Dosage: UNK
     Dates: end: 20110630

REACTIONS (2)
  - Drug ineffective for unapproved indication [Unknown]
  - Off label use [Recovered/Resolved]
